FAERS Safety Report 6566095-4 (Version None)
Quarter: 2010Q1

REPORT INFORMATION
  Report Type: 
  Country: None (occurrence: None)
  Receive Date: 20100202
  Receipt Date: 20100118
  Transmission Date: 20100710
  Serious: No
  Sender: FDA-Public Use
  Company Number: US-JNJFOC-20100108219

PATIENT
  Sex: Female

DRUGS (2)
  1. DURAGESIC-100 [Suspect]
     Indication: DRUG USE FOR UNKNOWN INDICATION
     Route: 062
  2. DURAGESIC-100 [Suspect]
     Route: 062

REACTIONS (8)
  - APPLICATION SITE BURN [None]
  - APPLICATION SITE HAEMATOMA [None]
  - APPLICATION SITE RASH [None]
  - APPLICATION SITE REACTION [None]
  - DRUG ADMINISTERED AT INAPPROPRIATE SITE [None]
  - DRUG INEFFECTIVE [None]
  - PALPITATIONS [None]
  - WRONG TECHNIQUE IN DRUG USAGE PROCESS [None]
